FAERS Safety Report 11457718 (Version 1)
Quarter: 2015Q3

REPORT INFORMATION
  Report Type: Spontaneous
  Country: NZ (occurrence: NZ)
  Receive Date: 20150904
  Receipt Date: 20150904
  Transmission Date: 20151125
  Serious: Yes (Other)
  Sender: FDA-Public Use
  Company Number: NZ-GUERBET LLC-1041633

PATIENT
  Age: 71 Year
  Sex: Female

DRUGS (5)
  1. DALTEPARIN [Concomitant]
     Active Substance: DALTEPARIN
  2. MORPHINE [Concomitant]
     Active Substance: MORPHINE
  3. HEXABRIX [Suspect]
     Active Substance: IOXAGLATE MEGLUMINE\IOXAGLATE SODIUM
  4. ASPIRINE(ACETYLSALICYLIC ACID) [Concomitant]
     Route: 048
  5. METOCLOPRAMIDE. [Concomitant]
     Active Substance: METOCLOPRAMIDE

REACTIONS (1)
  - Nephropathy toxic [Unknown]
